FAERS Safety Report 7383327-3 (Version None)
Quarter: 2011Q1

REPORT INFORMATION
  Report Type: 
  Country: None (occurrence: None)
  Receive Date: 20110330
  Receipt Date: 20110322
  Transmission Date: 20110831
  Serious: Yes (Hospitalization, Other)
  Sender: FDA-Public Use
  Company Number: JP-MILLENNIUM PHARMACEUTICALS, INC.-2010-03115

PATIENT

DRUGS (31)
  1. VELCADE [Suspect]
     Dosage: 1.35 MG, CYCLIC
     Route: 042
     Dates: start: 20100118, end: 20100308
  2. WYPAX [Concomitant]
     Indication: DEPRESSION
     Dosage: 1 MG, UNK
     Route: 048
     Dates: start: 20100108, end: 20100614
  3. PREDNISONE [Suspect]
     Indication: MULTIPLE MYELOMA
     Dosage: 85 MG, UNK
     Route: 048
     Dates: start: 20090907, end: 20090910
  4. PREDNISONE [Suspect]
     Dosage: 75 MG, UNK
     Route: 048
     Dates: start: 20100419, end: 20100603
  5. LUDIOMIL                           /00331902/ [Concomitant]
     Indication: DEPRESSION
     Dosage: 20 MG, UNK
     Route: 048
     Dates: end: 20100614
  6. LENDORMIN [Concomitant]
     Indication: INSOMNIA
  7. BASEN [Concomitant]
     Indication: HYPERTENSION
     Dosage: 0.6 MG, UNK
     Route: 048
  8. ARTIST [Concomitant]
     Indication: HYPERTENSION
     Dosage: 10 MG, UNK
     Route: 048
  9. MUCOSTA [Concomitant]
     Indication: DYSGEUSIA
     Dosage: 300 MG, UNK
     Route: 048
     Dates: start: 20091006
  10. VELCADE [Suspect]
     Indication: MULTIPLE MYELOMA
     Dosage: 1.85 MG, CYCLIC
     Route: 042
     Dates: start: 20090907, end: 20091008
  11. VELCADE [Suspect]
     Dosage: 1.81 MG, CYCLIC
     Route: 042
     Dates: start: 20091019, end: 20091120
  12. PANTOSIN [Concomitant]
     Indication: CONSTIPATION
     Dosage: 400 MG, UNK
     Route: 048
     Dates: start: 20091110
  13. PURSENNID                          /00571901/ [Concomitant]
     Indication: CONSTIPATION
     Dosage: 24 MG, UNK
     Route: 048
  14. PREDNISONE [Suspect]
     Dosage: 80 MG, UNK
     Route: 048
     Dates: start: 20091019, end: 20100304
  15. LENDORMIN [Concomitant]
     Indication: DEPRESSION
     Dosage: 0.25 MG, UNK
     Route: 048
     Dates: start: 20090812, end: 20100613
  16. VALTREX [Concomitant]
     Indication: HERPES ZOSTER
     Dosage: 500 MG, UNK
     Route: 048
     Dates: start: 20091011
  17. MYSLEE [Concomitant]
     Indication: DEPRESSION
     Dosage: 5 MG, UNK
     Route: 048
     Dates: start: 20100303
  18. MAGMITT [Concomitant]
     Indication: CONSTIPATION
     Dosage: 660 MG, UNK
     Route: 048
     Dates: start: 20091019
  19. LAXOBERON [Concomitant]
     Indication: CONSTIPATION
     Dosage: UNK
     Route: 048
  20. VELCADE [Suspect]
     Dosage: 1.33 MG, CYCLIC
     Route: 042
     Dates: start: 20100323, end: 20100517
  21. BAKTAR [Concomitant]
     Indication: INFECTION PROPHYLAXIS
     Dosage: 480 MG, UNK
     Route: 048
     Dates: start: 20090904
  22. PANCREAZE [Concomitant]
     Indication: CONSTIPATION
     Dosage: 3 DF, UNK
     Route: 048
  23. AZUNOL                             /00317302/ [Concomitant]
     Indication: INFECTION PROPHYLAXIS
     Dosage: UNK
     Route: 049
     Dates: start: 20090918
  24. PARIET [Concomitant]
     Indication: PEPTIC ULCER
     Dosage: 10 MG, UNK
     Route: 048
     Dates: start: 20091006
  25. VELCADE [Suspect]
     Dosage: 1.79 MG, CYCLIC
     Route: 042
     Dates: start: 20091214, end: 20091224
  26. VELCADE [Suspect]
     Dosage: 1.30 MG, CYCLIC
     Route: 042
     Dates: start: 20100531, end: 20100607
  27. MELPHALAN [Suspect]
     Indication: MULTIPLE MYELOMA
     Dosage: 12 MG, UNK
     Route: 048
     Dates: start: 20090907, end: 20091217
  28. MELPHALAN [Suspect]
     Dosage: 8 UNK, UNK
     Route: 048
     Dates: start: 20100118, end: 20100603
  29. TETRAMIDE [Concomitant]
     Indication: DEPRESSION
     Dosage: 10 MG, UNK
     Route: 048
     Dates: start: 20100312
  30. ADALAT [Concomitant]
     Indication: HYPERTENSION
     Dosage: 20 MG, UNK
     Route: 048
  31. ISODINE [Concomitant]
     Indication: INFECTION PROPHYLAXIS
     Dosage: UNK
     Route: 049
     Dates: start: 20090914

REACTIONS (2)
  - DEPRESSION [None]
  - SUICIDE ATTEMPT [None]
